FAERS Safety Report 9675442 (Version 1)
Quarter: 2013Q4

REPORT INFORMATION
  Report Type: Spontaneous
  Country: AU (occurrence: AU)
  Receive Date: 20131107
  Receipt Date: 20131107
  Transmission Date: 20140711
  Serious: Yes (Other)
  Sender: FDA-Public Use
  Company Number: AU-MYLANLABS-2013S1024195

PATIENT
  Age: 51 Year
  Sex: Female

DRUGS (2)
  1. LITHIUM [Suspect]
     Indication: BIPOLAR DISORDER
     Dosage: MAINTENANCE THERAPY OF 1350 MG/DAY
     Route: 065
  2. QUETIAPINE [Concomitant]
     Indication: BIPOLAR DISORDER
     Dosage: AT NIGHT
     Route: 065

REACTIONS (1)
  - Thyroiditis [Recovered/Resolved]
